FAERS Safety Report 11299494 (Version 1)
Quarter: 2015Q3

REPORT INFORMATION
  Report Type: Spontaneous
  Country: US (occurrence: US)
  Receive Date: 20150722
  Receipt Date: 20150722
  Transmission Date: 20151125
  Serious: Yes (Hospitalization)
  Sender: FDA-Public Use
  Company Number: US-ELI_LILLY_AND_COMPANY-US201212000963

PATIENT
  Age: 66 Year
  Sex: Male
  Weight: 125.2 kg

DRUGS (13)
  1. GLIBENCLAMIDE [Concomitant]
     Active Substance: GLYBURIDE
     Dosage: 10 MG, QD
     Dates: start: 20100711
  2. TRIAMTERENE. [Concomitant]
     Active Substance: TRIAMTERENE
     Dosage: UNK
     Dates: start: 2000
  3. ASA [Concomitant]
     Active Substance: ASPIRIN
     Dosage: 81 MG, QD
     Route: 065
     Dates: start: 20100609, end: 20110421
  4. METOPROLOL [Concomitant]
     Active Substance: METOPROLOL
     Dosage: 200 MG, QD
     Dates: start: 20071011
  5. FISH OIL [Concomitant]
     Active Substance: FISH OIL
     Dosage: 3000 MG, UNK
     Dates: start: 2008
  6. ACTOS [Concomitant]
     Active Substance: PIOGLITAZONE HYDROCHLORIDE
     Dosage: 30 MG, QD
     Dates: start: 20100510
  7. METFORMIN [Concomitant]
     Active Substance: METFORMIN HYDROCHLORIDE
     Dosage: 1700 MG, UNK
     Dates: start: 20100711
  8. HYDROCHLOROTHIAZIDE. [Concomitant]
     Active Substance: HYDROCHLOROTHIAZIDE
     Dosage: UNK
     Dates: start: 2000
  9. EFFIENT [Suspect]
     Active Substance: PRASUGREL HYDROCHLORIDE
     Dosage: 10 MG, QD
     Route: 065
     Dates: start: 20100227, end: 20110421
  10. AMLODIPINE [Concomitant]
     Active Substance: AMLODIPINE BESYLATE
     Dosage: 10 MG, QD
     Dates: start: 20090728
  11. SIMVASTATIN. [Concomitant]
     Active Substance: SIMVASTATIN
     Dosage: 40 MG, QD
     Dates: start: 2007
  12. COZAAR [Concomitant]
     Active Substance: LOSARTAN POTASSIUM
     Dosage: UNK
     Dates: start: 2000
  13. VITAMIN B12 [Concomitant]
     Active Substance: CYANOCOBALAMIN
     Dosage: UNK
     Dates: start: 2009

REACTIONS (1)
  - Diverticulum intestinal haemorrhagic [Recovered/Resolved]

NARRATIVE: CASE EVENT DATE: 20110421
